FAERS Safety Report 8003516-4 (Version None)
Quarter: 2011Q4

REPORT INFORMATION
  Report Type: 
  Country: None (occurrence: None)
  Receive Date: 20111222
  Receipt Date: 20111220
  Transmission Date: 20120403
  Serious: No
  Sender: FDA-Public Use
  Company Number: US-PFIZER INC-2011281190

PATIENT
  Sex: Female
  Weight: 70.295 kg

DRUGS (2)
  1. PREMARIN [Suspect]
     Dosage: UNK
  2. MELOXICAM [Concomitant]
     Dosage: UNK

REACTIONS (3)
  - ARTHRALGIA [None]
  - SCRATCH [None]
  - PRURITUS GENERALISED [None]
